FAERS Safety Report 21507365 (Version 1)
Quarter: 2022Q4

REPORT INFORMATION
  Report Type: Spontaneous
  Country: US (occurrence: None)
  Receive Date: 20221025
  Receipt Date: 20221025
  Transmission Date: 20230112
  Serious: Yes (Death)
  Sender: FDA-Public Use
  Company Number: None

PATIENT
  Age: 72 Year
  Sex: Male

DRUGS (25)
  1. ENVARSUS XR [Suspect]
     Active Substance: TACROLIMUS
     Dates: start: 20211224, end: 20220511
  2. SIROLIMUS [Concomitant]
     Active Substance: SIROLIMUS
  3. SIROLIMUS [Concomitant]
     Active Substance: SIROLIMUS
  4. LISINOPRIL [Concomitant]
  5. ASPIRIN [Concomitant]
     Active Substance: ASPIRIN
  6. BUSPIRONE [Concomitant]
  7. FERROUS SULFATE [Concomitant]
  8. TAMSULOSIN [Concomitant]
  9. FLUTICASONE NS [Concomitant]
  10. LEVOTHYROXINE [Concomitant]
  11. METOPROLOL TARTRATE [Concomitant]
  12. MIRTAZAPINE [Concomitant]
  13. MUCINEX [Concomitant]
  14. MVI [Concomitant]
  15. PANTOPRAZOLE [Concomitant]
  16. PREDNISONE [Concomitant]
  17. TOBRAMYCIN INH SOLN [Concomitant]
  18. HYDROXYZINE HCL [Concomitant]
  19. ESCITALOPRAM [Concomitant]
  20. MYCOPHENOLATE [Concomitant]
  21. BACTRIM [Concomitant]
  22. SODIUM POLYSTYRENE SULFONATE POWDER [Concomitant]
  23. CALCIUM [Concomitant]
  24. AZITHROMYCIN [Concomitant]
  25. LOPERAMIDE [Concomitant]

REACTIONS (1)
  - Death [None]

NARRATIVE: CASE EVENT DATE: 20220511
